FAERS Safety Report 8898943 (Version 1)
Quarter: 2012Q4

REPORT INFORMATION
  Report Type: 
  Country: US (occurrence: US)
  Receive Date: 20121108
  Receipt Date: 20121108
  Transmission Date: 20130627
  Serious: No
  Sender: FDA-Public Use
  Company Number: US-AMGEN-USASP2012027667

PATIENT
  Sex: Female
  Weight: 77.1 kg

DRUGS (3)
  1. ENBREL [Suspect]
     Indication: PRODUCT USED FOR UNKNOWN INDICATION
     Dosage: 25 mg, 2 times/wk
     Route: 058
  2. LEVOXYL [Concomitant]
     Dosage: 112 mug, UNK
  3. ACTONEL [Concomitant]
     Dosage: 35 mg, UNK

REACTIONS (1)
  - Skin cancer [Unknown]
